FAERS Safety Report 21746906 (Version 2)
Quarter: 2023Q2

REPORT INFORMATION
  Report Type: Report from Study
  Country: US (occurrence: US)
  Receive Date: 20221219
  Receipt Date: 20230610
  Transmission Date: 20230722
  Serious: Yes (Hospitalization)
  Sender: FDA-Public Use
  Company Number: US-ARGENX-2022-ARGX-US002010

PATIENT
  Age: 55 Year
  Sex: Female
  Weight: 110.66 kg

DRUGS (1)
  1. VYVGART [Suspect]
     Active Substance: EFGARTIGIMOD ALFA-FCAB
     Indication: Myasthenia gravis
     Dosage: UNK
     Route: 042
     Dates: start: 20220929

REACTIONS (5)
  - COVID-19 [Unknown]
  - Erythema [Recovered/Resolved]
  - Dyspnoea [Unknown]
  - Nasal congestion [Unknown]
  - Asthenia [Unknown]

NARRATIVE: CASE EVENT DATE: 20220810
